FAERS Safety Report 7056371-3 (Version None)
Quarter: 2010Q4

REPORT INFORMATION
  Report Type: 
  Country: None (occurrence: None)
  Receive Date: 20101018
  Receipt Date: 20101005
  Transmission Date: 20110411
  Serious: Yes (Other)
  Sender: FDA-Public Use
  Company Number: DE-1183346

PATIENT
  Sex: Female

DRUGS (3)
  1. AZOPT [Suspect]
     Indication: INTRAOCULAR PRESSURE INCREASED
     Dosage: 1 GTT BID OS, OPHTHALMIC
     Route: 047
     Dates: start: 20100908
  2. RAMIPRIL [Concomitant]
  3. HYALURONIC ACID (HYALURONIC ACID) [Concomitant]

REACTIONS (1)
  - HYPERTENSION [None]
